FAERS Safety Report 6561398-1 (Version None)
Quarter: 2010Q1

REPORT INFORMATION
  Report Type: 
  Country: None (occurrence: None)
  Receive Date: 20100130
  Receipt Date: 20091013
  Transmission Date: 20100710
  Serious: No
  Sender: FDA-Public Use
  Company Number: US-ABBOTT-09P-163-0602996-00

PATIENT
  Sex: Female
  Weight: 67.192 kg

DRUGS (7)
  1. HUMIRA [Suspect]
     Indication: CROHN'S DISEASE
     Dates: start: 20080101
  2. VITAMIN TAB [Concomitant]
     Indication: VITAMIN SUPPLEMENTATION
  3. CALCIUM [Concomitant]
     Indication: MINERAL SUPPLEMENTATION
  4. FOLIC ACID [Concomitant]
     Indication: CROHN'S DISEASE
  5. FISH OIL [Concomitant]
     Indication: CROHN'S DISEASE
  6. TRAZODONE [Concomitant]
     Indication: SLEEP DISORDER THERAPY
  7. COLESTIPOL HYDROCHLORIDE [Concomitant]
     Indication: PROPHYLAXIS AGAINST DIARRHOEA

REACTIONS (2)
  - ARTHRITIS [None]
  - INJECTION SITE ERYTHEMA [None]
